FAERS Safety Report 8613943 (Version 2)
Quarter: 2012Q4

REPORT INFORMATION
  Report Type: Report from Study
  Country: JP (occurrence: JP)
  Receive Date: 20120614
  Receipt Date: 20121124
  Transmission Date: 20130627
  Serious: Yes (Death, Hospitalization, Disabling)
  Sender: FDA-Public Use
  Company Number: PHHY2011JP45320

PATIENT
  Age: 48 Year
  Sex: Male
  Weight: 54 kg

DRUGS (7)
  1. AFINITOR [Suspect]
     Indication: METASTATIC RENAL CELL CARCINOMA
     Dosage: 10 mg, Daily
     Route: 048
     Dates: start: 20110107, end: 20110315
  2. URSO [Concomitant]
     Indication: DRUG-INDUCED LIVER INJURY
     Route: 048
     Dates: start: 20101218, end: 20110214
  3. PREDONINE [Concomitant]
     Indication: METASTATIC RENAL CELL CARCINOMA
     Dates: start: 20101209
  4. FAMOTIDINE [Concomitant]
     Indication: GASTRITIS
     Route: 048
     Dates: start: 20101108
  5. COLDRIN [Concomitant]
     Indication: METASTATIC RENAL CELL CARCINOMA
     Route: 048
     Dates: start: 20110106
  6. HACHIAZULE [Concomitant]
     Route: 048
     Dates: start: 20110117, end: 20110224
  7. PENTCILLIN [Concomitant]
     Route: 042
     Dates: start: 20110322, end: 20110328

REACTIONS (3)
  - Neoplasm malignant [Fatal]
  - Interstitial lung disease [Not Recovered/Not Resolved]
  - Dyspnoea [Not Recovered/Not Resolved]
